FAERS Safety Report 4456199-4 (Version None)
Quarter: 2004Q3

REPORT INFORMATION
  Report Type: 
  Country: None (occurrence: None)
  Receive Date: 20040920
  Receipt Date: 20040906
  Transmission Date: 20050211
  Serious: Yes (Disabling)
  Sender: FDA-Public Use
  Company Number: 2004IM000774

PATIENT
  Age: 69 Year
  Sex: Female

DRUGS (13)
  1. ADVAFERON (A643_INTERFERON ALFACON-1) [Suspect]
     Indication: HEPATITIS C
     Dosage: 18 MU; QD; SUBCUTANEOUS
     Route: 058
     Dates: start: 20031108
  2. DIPYRIDAMOLE [Concomitant]
  3. DIGOXIN [Concomitant]
  4. PRANLUKAST [Concomitant]
  5. NIFEDIPINE [Concomitant]
  6. ALLOPURINOL [Concomitant]
  7. DIPYRIDAMOLE [Concomitant]
  8. LECITHIN [Concomitant]
  9. NICORANDIL [Concomitant]
  10. ZOLPIDEM TARTRATE [Concomitant]
  11. CAMOSTAT MESILATE [Concomitant]
  12. TIAPROFENIC ACID [Concomitant]
  13. NEO UMOR [Concomitant]

REACTIONS (2)
  - DEAFNESS [None]
  - HEARING IMPAIRED [None]
